FAERS Safety Report 20968476 (Version 1)
Quarter: 2022Q2

REPORT INFORMATION
  Report Type: Other
  Country: CL (occurrence: None)
  Receive Date: 20220616
  Receipt Date: 20220616
  Transmission Date: 20220721
  Serious: Yes (Hospitalization)
  Sender: FDA-Public Use
  Company Number: CL-ROCHE-3108093

PATIENT
  Age: 3 Year
  Sex: Male

DRUGS (1)
  1. EVRYSDI [Suspect]
     Active Substance: RISDIPLAM
     Indication: Product used for unknown indication
     Dosage: 4.2 CM3 A DAY
     Route: 065

REACTIONS (1)
  - Pneumonia parainfluenzae viral [Recovering/Resolving]

NARRATIVE: CASE EVENT DATE: 20220518
